FAERS Safety Report 4350033-9 (Version None)
Quarter: 2004Q2

REPORT INFORMATION
  Report Type: 
  Country: None (occurrence: None)
  Receive Date: 20040429
  Receipt Date: 20040426
  Transmission Date: 20050107
  Serious: Yes (Other)
  Sender: FDA-Public Use
  Company Number: 200414472GDDC

PATIENT
  Age: 61 Year
  Sex: Female

DRUGS (5)
  1. NASACORT [Suspect]
     Indication: NASOPHARYNGITIS
     Dosage: DOSE: 2 SPRAYS/NOSTRIL
     Route: 045
     Dates: start: 20040319
  2. ZOPICLONE [Concomitant]
     Route: 048
     Dates: start: 19970101
  3. SERETIDE [Concomitant]
     Dosage: DOSE: 2 PUFFS (125 MCG)
     Route: 055
     Dates: start: 20030210
  4. FUROSEMIDE [Concomitant]
     Route: 048
     Dates: start: 20030428
  5. ALBUTEROL SULFATE [Concomitant]
     Dosage: DOSE: 2 PUFFS (100 MCG)
     Route: 055
     Dates: start: 20030127

REACTIONS (1)
  - PHOTOSENSITIVITY REACTION [None]
